FAERS Safety Report 9012860 (Version 3)
Quarter: 2014Q3

REPORT INFORMATION
  Report Type: Spontaneous
  Country: US (occurrence: US)
  Receive Date: 20130114
  Receipt Date: 20140708
  Transmission Date: 20150326
  Serious: Yes (Hospitalization, Other)
  Sender: FDA-Public Use
  Company Number: US-009507513-1301USA005280

PATIENT
  Sex: Female
  Weight: 95.24 kg

DRUGS (2)
  1. NUVARING [Suspect]
     Active Substance: ETHINYL ESTRADIOL\ETONOGESTREL
     Indication: CONTRACEPTION
     Dosage: UNK
     Route: 067
     Dates: start: 201205, end: 20120719
  2. ZYRTEC [Concomitant]
     Active Substance: CETIRIZINE HYDROCHLORIDE
     Indication: HYPERSENSITIVITY
     Dosage: 10 MG, QD
     Dates: start: 2011

REACTIONS (9)
  - Pulmonary embolism [Recovering/Resolving]
  - Gestational diabetes [Recovered/Resolved]
  - Adverse drug reaction [Unknown]
  - Coagulopathy [Unknown]
  - Maternal exposure before pregnancy [Recovered/Resolved]
  - Uterine haemorrhage [Unknown]
  - Breakthrough pain [Unknown]
  - Migraine [Not Recovered/Not Resolved]
  - Cellulitis [Unknown]

NARRATIVE: CASE EVENT DATE: 2012
